FAERS Safety Report 4782882-7 (Version None)
Quarter: 2005Q3

REPORT INFORMATION
  Report Type: 
  Country: None (occurrence: None)
  Receive Date: 20050914
  Receipt Date: 20050602
  Transmission Date: 20060218
  Serious: Yes (Hospitalization)
  Sender: FDA-Public Use
  Company Number: 163-20785-05060043

PATIENT
  Age: 57 Year
  Sex: Male
  Weight: 136.9863 kg

DRUGS (4)
  1. THALOMID [Suspect]
     Indication: METASTATIC RENAL CELL CARCINOMA
     Dosage: 200 MG, DAILY, ORAL
     Route: 048
     Dates: start: 20050331, end: 20050601
  2. PEG-INTERFERON (PEGINTERFERON ALFA-2B) [Suspect]
     Indication: METASTATIC RENAL CELL CARCINOMA
     Dosage: SEE IMAGE
     Dates: start: 20050512, end: 20050512
  3. PEG-INTERFERON (PEGINTERFERON ALFA-2B) [Suspect]
     Indication: METASTATIC RENAL CELL CARCINOMA
     Dosage: SEE IMAGE
     Dates: start: 20050519, end: 20050519
  4. LEUKINE [Suspect]
     Indication: METASTATIC RENAL CELL CARCINOMA
     Dosage: SEE IMAGE
     Dates: start: 20050512, end: 20050521

REACTIONS (1)
  - DEEP VEIN THROMBOSIS [None]
